FAERS Safety Report 19810621 (Version 3)
Quarter: 2021Q4

REPORT INFORMATION
  Report Type: Spontaneous
  Country: JP (occurrence: JP)
  Receive Date: 20210909
  Receipt Date: 20211008
  Transmission Date: 20220303
  Serious: Yes (Hospitalization)
  Sender: FDA-Public Use
  Company Number: JP-ONO-2021JP021587

PATIENT
  Age: 48 Year
  Sex: Female
  Weight: 71.2 kg

DRUGS (12)
  1. BRAFTOVI [Suspect]
     Active Substance: ENCORAFENIB
     Indication: Malignant glioma
     Dosage: 9 DF, EVERYDAY
     Route: 048
     Dates: start: 20210611
  2. MEKTOVI [Suspect]
     Active Substance: BINIMETINIB
     Indication: Malignant glioma
     Dosage: 45 MG, Q12H
     Route: 048
     Dates: start: 20210611
  3. PHENYTOIN SODIUM [Concomitant]
     Active Substance: PHENYTOIN SODIUM
     Indication: Malignant glioma
     Dosage: 0.5 DF, EVERYDAY
     Route: 048
  4. AZILSARTAN KAMEDOXOMIL [Concomitant]
     Active Substance: AZILSARTAN KAMEDOXOMIL
     Indication: Hypertension
     Dosage: 40 MG, EVERYDAY
     Route: 048
  5. FAMOTIDINE D EMEC [Concomitant]
     Indication: Gastric ulcer
     Dosage: 20 MG, Q12H
     Route: 048
  6. BEPOTASTINE BESYLATE [Concomitant]
     Active Substance: BEPOTASTINE BESYLATE
     Indication: Hypersensitivity
     Dosage: 20 MG, Q12H
     Route: 048
  7. FYCOMPA [Concomitant]
     Active Substance: PERAMPANEL
     Indication: Malignant glioma
     Dosage: 4 MG, EVERYDAY
     Route: 048
  8. VIMPAT [Concomitant]
     Active Substance: LACOSAMIDE
     Indication: Malignant glioma
     Dosage: 100 MG, EVERYDAY
     Route: 048
  9. CALONAL [Concomitant]
     Active Substance: ACETAMINOPHEN
     Indication: Malignant glioma
     Dosage: 600 MG, Q12H
     Route: 048
  10. REBAMIPIDE [Concomitant]
     Active Substance: REBAMIPIDE
     Indication: Gastritis prophylaxis
     Dosage: 200 MG, Q12H
     Route: 048
  11. SODIUM FERROUS CITRATE [Concomitant]
     Active Substance: SODIUM FERROUS CITRATE
     Indication: Anaemia
     Dosage: 100 MG, Q12H
     Route: 048
  12. GLYCOSAMINOGLYCANS [Concomitant]
     Active Substance: GLYCOSAMINOGLYCANS
     Indication: Prophylaxis
     Dosage: UNK, PRN
     Route: 061
     Dates: start: 20210611

REACTIONS (2)
  - Hyperglycaemia [Recovering/Resolving]
  - Off label use [Unknown]

NARRATIVE: CASE EVENT DATE: 20210611
